FAERS Safety Report 5323741-0 (Version None)
Quarter: 2007Q2

REPORT INFORMATION
  Report Type: 
  Country: None (occurrence: None)
  Receive Date: 20070514
  Receipt Date: 20070503
  Transmission Date: 20071010
  Serious: No
  Sender: FDA-Public Use
  Company Number: FR-BAXTER-2007BH004119

PATIENT
  Sex: Male

DRUGS (5)
  1. EXTRANEAL [Suspect]
     Indication: PERITONEAL DIALYSIS
     Route: 033
     Dates: end: 20070503
  2. DIANEAL [Concomitant]
     Indication: PERITONEAL DIALYSIS
     Dosage: DOSE UNIT:UNKNOWN
     Route: 033
  3. NUTRINEAL [Concomitant]
     Indication: PERITONEAL DIALYSIS
     Dosage: DOSE UNIT:UNKNOWN
     Route: 033
  4. LASIX [Concomitant]
  5. RENAGEL [Concomitant]

REACTIONS (2)
  - BACTERIAL INFECTION [None]
  - PERITONITIS [None]
